FAERS Safety Report 8284348-9 (Version None)
Quarter: 2012Q2

REPORT INFORMATION
  Report Type: 
  Country: None (occurrence: None)
  Receive Date: 20120413
  Receipt Date: 20110427
  Transmission Date: 20120825
  Serious: No
  Sender: FDA-Public Use
  Company Number: US-ASTRAZENECA-2011SE24993

PATIENT
  Age: 55 Year
  Sex: Male
  Weight: 95.3 kg

DRUGS (6)
  1. NEXIUM [Suspect]
     Indication: GASTROOESOPHAGEAL REFLUX DISEASE
     Route: 048
     Dates: start: 20080101
  2. OMEPRAZOLE [Suspect]
     Route: 048
  3. XANAX [Concomitant]
  4. HYDROCODONE BITARTRATE [Concomitant]
     Indication: ARTHRITIS
     Dosage: 10/650
  5. ENFORCE HCT [Concomitant]
     Indication: HYPERTENSION
  6. SPIRIVA [Concomitant]
     Indication: CHRONIC OBSTRUCTIVE PULMONARY DISEASE

REACTIONS (3)
  - DRUG INEFFECTIVE [None]
  - CHRONIC OBSTRUCTIVE PULMONARY DISEASE [None]
  - PHYSICAL DISABILITY [None]
